FAERS Safety Report 9663759 (Version 1)
Quarter: 2013Q4

REPORT INFORMATION
  Report Type: Report from Study
  Country: AU (occurrence: AU)
  Receive Date: 20131101
  Receipt Date: 20131101
  Transmission Date: 20140711
  Serious: Yes (Other)
  Sender: FDA-Public Use
  Company Number: PHHY2013AU121408

PATIENT
  Sex: Female

DRUGS (2)
  1. GILENYA [Suspect]
     Indication: MULTIPLE SCLEROSIS
     Dosage: 0.5 MG, QD
     Route: 048
     Dates: start: 20130708
  2. DITROPAN [Interacting]
     Indication: HYPERTONIC BLADDER

REACTIONS (6)
  - Palpitations [Not Recovered/Not Resolved]
  - Chest pain [Not Recovered/Not Resolved]
  - Echocardiogram abnormal [Unknown]
  - Ultrasound scan abnormal [Unknown]
  - Electrocardiogram abnormal [Unknown]
  - Drug interaction [Unknown]
